FAERS Safety Report 4699928-7 (Version None)
Quarter: 2005Q2

REPORT INFORMATION
  Report Type: 
  Country: None (occurrence: None)
  Receive Date: 20050623
  Receipt Date: 20050614
  Transmission Date: 20051028
  Serious: Yes (Other)
  Sender: FDA-Public Use
  Company Number: 056-20785-05060220

PATIENT
  Age: 54 Year
  Sex: Female

DRUGS (1)
  1. THALIDOMIDE (THALIDOMIDE) (CAPSULES) [Suspect]
     Indication: MULTIPLE MYELOMA
     Dosage: MAXIMUM DOSE OF 100 MG(DISCONTINUED)., QD, ORAL
     Route: 048

REACTIONS (1)
  - DRUG TOXICITY [None]
